FAERS Safety Report 17659800 (Version 4)
Quarter: 2020Q2

REPORT INFORMATION
  Report Type: Report from Study
  Country: BD (occurrence: BD)
  Receive Date: 20200413
  Receipt Date: 20200608
  Transmission Date: 20200713
  Serious: Yes (Death, Hospitalization)
  Sender: FDA-Public Use
  Company Number: NVSC2020BD098329

PATIENT
  Age: 27 Year
  Sex: Female
  Weight: 47 kg

DRUGS (1)
  1. SANDIMMUN NEORAL [Suspect]
     Active Substance: CYCLOSPORINE
     Indication: RENAL TRANSPLANT
     Dosage: 25 MG, UNKNOWN (50^S)
     Route: 048
     Dates: start: 20191115

REACTIONS (4)
  - Renal failure [Fatal]
  - Kidney transplant rejection [Fatal]
  - Pain [Fatal]
  - Pulmonary oedema [Fatal]

NARRATIVE: CASE EVENT DATE: 20200328
